FAERS Safety Report 23297549 (Version 2)
Quarter: 2024Q1

REPORT INFORMATION
  Report Type: Spontaneous
  Country: US (occurrence: US)
  Receive Date: 20231214
  Receipt Date: 20240124
  Transmission Date: 20240410
  Serious: No
  Sender: FDA-Public Use
  Company Number: US-AMGEN-USASP2023220553

PATIENT
  Age: 59 Year
  Sex: Female

DRUGS (2)
  1. TAVNEOS [Suspect]
     Active Substance: AVACOPAN
     Indication: Granulomatosis with polyangiitis
     Dosage: 3 DOSAGE FORM, BID (3 CAPSULES BY MOUTH TWO TIMES A DAY)
     Route: 048
     Dates: start: 20230911
  2. TAVNEOS [Suspect]
     Active Substance: AVACOPAN
     Dosage: UNK UNK, BID
     Route: 048
     Dates: start: 20230912

REACTIONS (2)
  - Adverse drug reaction [Recovering/Resolving]
  - Fatigue [Unknown]

NARRATIVE: CASE EVENT DATE: 20230101
